FAERS Safety Report 4395401-4 (Version None)
Quarter: 2004Q3

REPORT INFORMATION
  Report Type: 
  Country: None (occurrence: None)
  Receive Date: 20040706
  Receipt Date: 20040706
  Transmission Date: 20050211
  Serious: Yes (Death)
  Sender: FDA-Public Use
  Company Number: None

PATIENT
  Age: 39 Year
  Sex: Male

DRUGS (1)
  1. EXTRA STRENGTH TYLENOL PM (ACETAMINOPHEN/DIPHENHYDRAMINE HCL) CAPLET [Suspect]
     Indication: DRUG USE FOR UNKNOWN INDICATION
     Dosage: CAPLET

REACTIONS (1)
  - OVERDOSE [None]
